FAERS Safety Report 5157240-6 (Version None)
Quarter: 2006Q4

REPORT INFORMATION
  Report Type: 
  Country: None (occurrence: None)
  Receive Date: 20061115
  Receipt Date: 20061102
  Transmission Date: 20070319
  Serious: Yes (Hospitalization, Other)
  Sender: FDA-Public Use
  Company Number: HQWYE802230OCT06

PATIENT
  Sex: Male

DRUGS (3)
  1. TYGACIL [Suspect]
     Dosage: 100 MG LOADING DOSE, THEN 50 MG EVERY 12 HOURS, INTRAVENOUS
     Route: 042
     Dates: start: 20061001
  2. CEFEPIME [Concomitant]
  3. CUBICIN [Concomitant]

REACTIONS (1)
  - JAUNDICE CHOLESTATIC [None]
